FAERS Safety Report 20505062 (Version 7)
Quarter: 2022Q3

REPORT INFORMATION
  Report Type: Other
  Country: CA (occurrence: None)
  Receive Date: 20220223
  Receipt Date: 20220928
  Transmission Date: 20221027
  Serious: No
  Sender: FDA-Public Use
  Company Number: CA-ROCHE-3029902

PATIENT
  Sex: Female

DRUGS (5)
  1. OCREVUS [Suspect]
     Active Substance: OCRELIZUMAB
     Indication: Relapsing-remitting multiple sclerosis
     Dosage: 300 MG AT DAY 0 AND 14, THEN 600 MG EVERY 6 MONTH?LAST INFUSION WAS SEPT 23 2021.
     Route: 042
     Dates: start: 20160601
  2. GILENYA [Concomitant]
     Active Substance: FINGOLIMOD HYDROCHLORIDE
     Dates: start: 2014, end: 2015
  3. COPAXONE [Concomitant]
     Active Substance: GLATIRAMER ACETATE
  4. ADVIL [Concomitant]
     Active Substance: IBUPROFEN
     Indication: Premedication
     Dosage: PRIOR TO INFUSION
     Route: 048
  5. NUVARING [Concomitant]
     Active Substance: ETHINYL ESTRADIOL\ETONOGESTREL

REACTIONS (4)
  - COVID-19 [Recovered/Resolved]
  - Urticaria [Unknown]
  - Rash [Unknown]
  - Myalgia [Recovered/Resolved]
